FAERS Safety Report 10209191 (Version 1)
Quarter: 2014Q2

REPORT INFORMATION
  Report Type: Report from Study
  Country: US (occurrence: US)
  Receive Date: 20140530
  Receipt Date: 20140530
  Transmission Date: 20141212
  Serious: Yes (Other)
  Sender: FDA-Public Use
  Company Number: US-ABBVIE-14P-163-1240354-00

PATIENT
  Age: 54 Year
  Sex: Female
  Weight: 90.8 kg

DRUGS (14)
  1. HUMIRA [Suspect]
     Indication: CROHN^S DISEASE
     Dosage: 160MG STARTING DOSE
     Route: 058
     Dates: start: 20140507, end: 20140507
  2. PREDNISONE [Concomitant]
     Indication: PRODUCT USED FOR UNKNOWN INDICATION
  3. BISOPROLOL HCTZ [Concomitant]
     Indication: PRODUCT USED FOR UNKNOWN INDICATION
  4. ZYRTEC [Concomitant]
     Indication: PRODUCT USED FOR UNKNOWN INDICATION
  5. VITAMIN B12 [Concomitant]
     Indication: PRODUCT USED FOR UNKNOWN INDICATION
  6. GEMFIBROZIL [Concomitant]
     Indication: PRODUCT USED FOR UNKNOWN INDICATION
  7. LANTUS [Concomitant]
     Indication: PRODUCT USED FOR UNKNOWN INDICATION
  8. HUMALOG [Concomitant]
     Indication: PRODUCT USED FOR UNKNOWN INDICATION
  9. LEVOTHYROXINE [Concomitant]
     Indication: PRODUCT USED FOR UNKNOWN INDICATION
  10. LISINOPRIL [Concomitant]
     Indication: PRODUCT USED FOR UNKNOWN INDICATION
  11. SERTRALINE [Concomitant]
     Indication: PRODUCT USED FOR UNKNOWN INDICATION
  12. GLIMEPIRIDE [Concomitant]
     Indication: PRODUCT USED FOR UNKNOWN INDICATION
  13. MULTIVITAMINS [Concomitant]
     Indication: PRODUCT USED FOR UNKNOWN INDICATION
  14. FLUTICASONE [Concomitant]
     Indication: PRODUCT USED FOR UNKNOWN INDICATION

REACTIONS (3)
  - Endodontic procedure [Recovered/Resolved]
  - Toothache [Recovered/Resolved]
  - Tooth abscess [Recovering/Resolving]
